FAERS Safety Report 6577830-3 (Version None)
Quarter: 2010Q1

REPORT INFORMATION
  Report Type: 
  Country: None (occurrence: None)
  Receive Date: 20100211
  Receipt Date: 20100129
  Transmission Date: 20100710
  Serious: Yes (Disabling)
  Sender: FDA-Public Use
  Company Number: FR-ROCHE-682989

PATIENT
  Sex: Female
  Weight: 66 kg

DRUGS (7)
  1. PEG-INTERFERON ALFA 2A (RO 25-8310) [Suspect]
     Dosage: FORM: ONE VIAL
     Route: 058
     Dates: start: 20091120, end: 20100122
  2. BLINDED RO 5190591 (ITMN-191) [Suspect]
     Dosage: PERMANENTLY DISCONTINUED
     Route: 048
     Dates: start: 20091120, end: 20100129
  3. RIBAVIRIN [Suspect]
     Route: 048
     Dates: start: 20091120, end: 20100129
  4. MODURETIC 5-50 [Concomitant]
  5. LEVOTHYROXINE SODIUM [Concomitant]
     Dates: start: 20020101
  6. VITAMIN D3 [Concomitant]
     Dosage: START DATE: 2
  7. EVISTA [Concomitant]
     Dates: end: 20091230

REACTIONS (1)
  - RETINAL ISCHAEMIA [None]
